FAERS Safety Report 9253105 (Version 2)
Quarter: 2013Q2

REPORT INFORMATION
  Report Type: Spontaneous
  Country: DE (occurrence: DE)
  Receive Date: 20130424
  Receipt Date: 20130502
  Transmission Date: 20140414
  Serious: Yes (Other)
  Sender: FDA-Public Use
  Company Number: DE-B.I. PHARMACEUTICALS,INC./RIDGEFIELD-2013-DE-01126DE

PATIENT
  Age: 82 Year
  Sex: Male

DRUGS (4)
  1. PRADAXA [Suspect]
     Indication: ATRIAL FIBRILLATION
     Dosage: 220 MG
  2. PANTOZOL [Concomitant]
  3. QUERTO [Concomitant]
  4. STROVIDAL [Concomitant]

REACTIONS (4)
  - Ischaemic stroke [Unknown]
  - Petechiae [Unknown]
  - Hemiparesis [Unknown]
  - Hemianopia [Not Recovered/Not Resolved]
